FAERS Safety Report 19256574 (Version 7)
Quarter: 2021Q3

REPORT INFORMATION
  Report Type: Spontaneous
  Country: KR (occurrence: KR)
  Receive Date: 20210513
  Receipt Date: 20210709
  Transmission Date: 20211014
  Serious: Yes (Hospitalization, Other)
  Sender: FDA-Public Use
  Company Number: KR-ALXN-A202105238

PATIENT
  Age: 52 Year
  Sex: Male
  Weight: 57 kg

DRUGS (3)
  1. PROGRAF [Concomitant]
     Active Substance: TACROLIMUS
     Indication: PROPHYLAXIS AGAINST TRANSPLANT REJECTION
     Dosage: UNK
     Route: 065
  2. SOLIRIS [Suspect]
     Active Substance: ECULIZUMAB
     Dosage: 1200 MG, Q2W (MAINTENANCE DOSE)
     Route: 065
     Dates: start: 20210525
  3. SOLIRIS [Suspect]
     Active Substance: ECULIZUMAB
     Indication: ATYPICAL HAEMOLYTIC URAEMIC SYNDROME
     Dosage: 900 MG, QW
     Route: 065
     Dates: start: 20210426, end: 20210518

REACTIONS (7)
  - Haemolysis [Recovering/Resolving]
  - Asthenopia [Not Recovered/Not Resolved]
  - Blood lactate dehydrogenase increased [Unknown]
  - General physical health deterioration [Recovered/Resolved]
  - Blood creatinine increased [Not Recovered/Not Resolved]
  - Glare [Not Recovered/Not Resolved]
  - Vision blurred [Recovering/Resolving]

NARRATIVE: CASE EVENT DATE: 202105
